FAERS Safety Report 6079960-1 (Version None)
Quarter: 2009Q1

REPORT INFORMATION
  Report Type: 
  Country: None (occurrence: None)
  Receive Date: 20090217
  Receipt Date: 20081212
  Transmission Date: 20090719
  Serious: Yes (Other)
  Sender: FDA-Public Use
  Company Number: DE-PFIZER INC-2009167847

PATIENT

DRUGS (4)
  1. NELFINAVIR MESILATE [Suspect]
  2. STAVUDINE [Suspect]
  3. DIDANOSINE [Suspect]
  4. EFAVIRENZ [Suspect]

REACTIONS (2)
  - DRUG TOXICITY [None]
  - GENOTYPE DRUG RESISTANCE TEST POSITIVE [None]
